FAERS Safety Report 6601152-5 (Version None)
Quarter: 2010Q1

REPORT INFORMATION
  Report Type: 
  Country: None (occurrence: None)
  Receive Date: 20100217
  Receipt Date: 20100126
  Transmission Date: 20100710
  Serious: Yes (Life-Threatening)
  Sender: FDA-Public Use
  Company Number: 1000011575

PATIENT
  Age: 62 Year
  Sex: Female

DRUGS (9)
  1. NEBIVOLOL HCL [Suspect]
     Dosage: 5 MG (5 MG, 1 IN 1 D), ORAL
     Route: 048
     Dates: start: 20070101, end: 20091028
  2. ATHYMIL [Suspect]
     Dosage: 90 MG (90 MG, 1 IN 1 D), ORAL
     Route: 048
     Dates: start: 20060101, end: 20091029
  3. TRIATEC [Suspect]
     Dosage: 10 MG (10 MG, 1 IN 1 D), ORAL
     Route: 048
     Dates: start: 20060101, end: 20091027
  4. ESIDRIX [Suspect]
     Dosage: 25 MG (25 MG, 1 IN 1 D), ORAL
     Route: 048
     Dates: start: 20081201, end: 20091029
  5. TETRAZEPAM [Suspect]
     Dosage: 50 MG (50 MG, 1 IN 1 D), ORAL
     Route: 048
     Dates: start: 20090601, end: 20091027
  6. LYRICA [Suspect]
     Dosage: 60 MG (60 MG, 1 IN 1 D), ORAL
     Route: 048
     Dates: start: 20081001, end: 20091023
  7. STRUCTUM [Concomitant]
  8. CALTRATE [Concomitant]
  9. OXYCONTIN [Concomitant]

REACTIONS (5)
  - BONE MARROW FAILURE [None]
  - CARDIOMEGALY [None]
  - CHOLELITHIASIS [None]
  - CYST [None]
  - PYREXIA [None]
